FAERS Safety Report 10626448 (Version 1)
Quarter: 2014Q4

REPORT INFORMATION
  Report Type: Spontaneous
  Country: US (occurrence: US)
  Receive Date: 20141204
  Receipt Date: 20141204
  Transmission Date: 20150529
  Serious: No
  Sender: FDA-Public Use
  Company Number: US-TARO-2014TAR00379

PATIENT
  Age: 64 Year
  Sex: Female
  Weight: 58.96 kg

DRUGS (2)
  1. TOPICORT [Suspect]
     Active Substance: DESOXIMETASONE
     Indication: INFLAMMATION
     Dosage: 8 DOSAGE UNITS, 2X/DAY
     Route: 061
     Dates: start: 201409, end: 201409
  2. TOPICORT [Suspect]
     Active Substance: DESOXIMETASONE
     Dosage: 8 DOSAGE UNITS, 1X/DAY
     Route: 061
     Dates: start: 201409

REACTIONS (1)
  - Seborrhoea [Not Recovered/Not Resolved]

NARRATIVE: CASE EVENT DATE: 201409
